FAERS Safety Report 8162081-1 (Version None)
Quarter: 2012Q1

REPORT INFORMATION
  Report Type: 
  Country: None (occurrence: None)
  Receive Date: 20120224
  Receipt Date: 20110816
  Transmission Date: 20120608
  Serious: No
  Sender: FDA-Public Use
  Company Number: US-BRISTOL-MYERS SQUIBB COMPANY-15973555

PATIENT
  Age: 60 Year
  Sex: Female

DRUGS (4)
  1. VICTOZA [Suspect]
  2. LANTUS [Suspect]
  3. GLIMEPIRIDE [Suspect]
  4. METFORMIN HCL [Suspect]

REACTIONS (2)
  - BLOOD GLUCOSE FLUCTUATION [None]
  - WEIGHT INCREASED [None]
